FAERS Safety Report 5422273-9 (Version None)
Quarter: 2007Q3

REPORT INFORMATION
  Report Type: 
  Country: None (occurrence: None)
  Receive Date: 20070820
  Receipt Date: 20070820
  Transmission Date: 20080115
  Serious: Yes (Life-Threatening, Disabling, Other)
  Sender: FDA-Public Use
  Company Number: None

PATIENT
  Age: 36 Year
  Sex: Male
  Weight: 74.8435 kg

DRUGS (1)
  1. OXYCONTIN [Suspect]
     Indication: BACK PAIN
     Dosage: 40MG  CID USAGE  PO
     Route: 048
     Dates: start: 20070601, end: 20070817

REACTIONS (5)
  - AGGRESSION [None]
  - DRUG ABUSER [None]
  - IMPAIRED SELF-CARE [None]
  - IMPULSIVE BEHAVIOUR [None]
  - LOSS OF EMPLOYMENT [None]
